FAERS Safety Report 16062237 (Version 1)
Quarter: 2019Q1

REPORT INFORMATION
  Report Type: Spontaneous
  Country: JP (occurrence: JP)
  Receive Date: 20190312
  Receipt Date: 20190312
  Transmission Date: 20190418
  Serious: Yes (Other)
  Sender: FDA-Public Use
  Company Number: JP-ASTRAZENECA-2019SE31471

PATIENT
  Age: 80 Year
  Sex: Female
  Weight: 40 kg

DRUGS (1)
  1. CRESTOR [Suspect]
     Active Substance: ROSUVASTATIN CALCIUM
     Route: 048

REACTIONS (3)
  - Stomatitis [Recovering/Resolving]
  - Erythema multiforme [Recovering/Resolving]
  - Asthenia [Recovering/Resolving]
